FAERS Safety Report 5769045-3 (Version None)
Quarter: 2008Q2

REPORT INFORMATION
  Report Type: 
  Country: None (occurrence: None)
  Receive Date: 20080610
  Receipt Date: 20080529
  Transmission Date: 20081010
  Serious: Yes (Other)
  Sender: FDA-Public Use
  Company Number: 2007AP001345

PATIENT
  Age: 42 Year
  Sex: Female

DRUGS (2)
  1. APO-TERBINAFINE (TERBINAFINE HYDROCHLORIDE) [Suspect]
     Indication: FUNGAL INFECTION
     Dosage: 1 TAB; TAB; PO; QD;
     Route: 048
     Dates: start: 20070511
  2. APO-TERBINAFINE (TERBINAFINE HYDROCHLORIDE) [Suspect]
     Indication: TINEA PEDIS
     Dosage: 1 TAB; TAB; PO; QD;
     Route: 048
     Dates: start: 20070511

REACTIONS (7)
  - ALOPECIA [None]
  - DYSGEUSIA [None]
  - FATIGUE [None]
  - MALAISE [None]
  - ONYCHOCLASIS [None]
  - RASH PAPULAR [None]
  - TINEA PEDIS [None]
